FAERS Safety Report 6252053-6 (Version None)
Quarter: 2009Q2

REPORT INFORMATION
  Report Type: 
  Country: None (occurrence: None)
  Receive Date: 20090630
  Receipt Date: 20070627
  Transmission Date: 20091009
  Serious: Yes (Hospitalization)
  Sender: FDA-Public Use
  Company Number: US-ROCHE-638710

PATIENT
  Sex: Male

DRUGS (6)
  1. ENFUVIRTIDE [Suspect]
     Route: 065
     Dates: start: 20050115, end: 20080101
  2. NORVIR [Concomitant]
     Dosage: FREQUENCY: QD
     Dates: start: 20050115, end: 20080814
  3. RETROVIR [Concomitant]
     Dosage: FREQUENCY: QD
     Dates: start: 20050115, end: 20080814
  4. VIREAD [Concomitant]
     Dosage: FREQUENCY: QD
     Dates: start: 20050115, end: 20080814
  5. ZIAGEN [Concomitant]
     Dates: start: 20050115, end: 20080814
  6. ISENTRESS [Concomitant]
     Dates: start: 20080101, end: 20080814

REACTIONS (1)
  - URINARY TRACT INFECTION [None]
